FAERS Safety Report 7902904-1 (Version None)
Quarter: 2011Q4

REPORT INFORMATION
  Report Type: 
  Country: None (occurrence: None)
  Receive Date: 20111107
  Receipt Date: 20111102
  Transmission Date: 20120403
  Serious: Yes (Hospitalization, Disabling, Other)
  Sender: FDA-Public Use
  Company Number: AUR-APL-2011-05682

PATIENT
  Age: 81 Year
  Sex: Female

DRUGS (5)
  1. CITALOPRAM HYDROBROMIDE [Concomitant]
  2. GALANTAMINE HYDROBROMIDE [Concomitant]
  3. LEVOTHYROXINE SODIUM [Concomitant]
  4. FLUCONAZOLE [Suspect]
     Indication: ANAL CANDIDIASIS
     Dosage: (50 MG), ORAL
     Route: 048
     Dates: start: 20111014, end: 20111016
  5. SIMVASTATIN [Concomitant]

REACTIONS (3)
  - ACUTE GENERALISED EXANTHEMATOUS PUSTULOSIS [None]
  - RENAL FAILURE [None]
  - DEHYDRATION [None]
